FAERS Safety Report 21625267 (Version 2)
Quarter: 2022Q4

REPORT INFORMATION
  Report Type: Spontaneous
  Country: US (occurrence: US)
  Receive Date: 20221122
  Receipt Date: 20221221
  Transmission Date: 20230113
  Serious: No
  Sender: FDA-Public Use
  Company Number: US-UNITED THERAPEUTICS-UNT-2022-027848

PATIENT
  Sex: Female

DRUGS (1)
  1. REMODULIN [Suspect]
     Active Substance: TREPROSTINIL
     Indication: Product used for unknown indication
     Dosage: UNK, CONTINUING
     Route: 058

REACTIONS (9)
  - Infusion site reaction [Unknown]
  - Device maintenance issue [Unknown]
  - Infusion site induration [Unknown]
  - Infusion site erythema [Unknown]
  - Device issue [Unknown]
  - Infusion site infection [Unknown]
  - Device failure [Unknown]
  - Device leakage [Unknown]
  - Overdose [Unknown]

NARRATIVE: CASE EVENT DATE: 20220101
